FAERS Safety Report 21903903 (Version 2)
Quarter: 2023Q1

REPORT INFORMATION
  Report Type: Spontaneous
  Country: FR (occurrence: FR)
  Receive Date: 20230124
  Receipt Date: 20230207
  Transmission Date: 20230418
  Serious: Yes (Hospitalization, Other)
  Sender: FDA-Public Use
  Company Number: FR-KRKA-FR2022K15975LIT

PATIENT
  Age: 82 Year
  Sex: Female

DRUGS (5)
  1. SERTRALINE [Suspect]
     Active Substance: SERTRALINE HYDROCHLORIDE
     Indication: Product used for unknown indication
     Dosage: 75 MG, QD, IN THE MORNING
     Route: 065
  2. IRBESARTAN [Suspect]
     Active Substance: IRBESARTAN
     Indication: Product used for unknown indication
     Dosage: 75 MG, IN THE MORNING
     Route: 065
  3. AMISULPRIDE [Suspect]
     Active Substance: AMISULPRIDE
     Indication: Product used for unknown indication
     Dosage: 100 MG, IN THE MORNING AND EVENING
     Route: 065
  4. OXAZEPAM [Suspect]
     Active Substance: OXAZEPAM
     Indication: Product used for unknown indication
     Dosage: 10 MG, IN THE EVENING
     Route: 065
  5. POLYETHYLENE GLYCOL 4000 [Suspect]
     Active Substance: POLYETHYLENE GLYCOL 4000
     Indication: Product used for unknown indication
     Dosage: IN THE MORNING
     Route: 065

REACTIONS (9)
  - Heart valve incompetence [Unknown]
  - Vitamin D deficiency [Unknown]
  - Malnutrition [Unknown]
  - Troponin T increased [Recovering/Resolving]
  - Troponin increased [Recovering/Resolving]
  - Balance disorder [Recovered/Resolved]
  - Fall [Unknown]
  - Extrapyramidal disorder [Unknown]
  - Rhabdomyolysis [Unknown]
